FAERS Safety Report 9467569 (Version 1)
Quarter: 2013Q3

REPORT INFORMATION
  Report Type: Spontaneous
  Country: US (occurrence: None)
  Receive Date: 20130819
  Receipt Date: 20130819
  Transmission Date: 20140515
  Serious: Yes (Hospitalization)
  Sender: FDA-Public Use
  Company Number: None

PATIENT
  Age: 20 Year
  Sex: Male
  Weight: 68.04 kg

DRUGS (2)
  1. LIALDA [Suspect]
     Indication: CROHN^S DISEASE
     Dosage: STRENGTH: 1.2 GM  4 TABLETS  ONCE/DAY  MOUTH W/A MEAL
     Route: 048
     Dates: start: 20130808, end: 20130811
  2. METHOTREXATE [Concomitant]

REACTIONS (1)
  - Pancreatitis [None]
